FAERS Safety Report 23975759 (Version 1)
Quarter: 2024Q2

REPORT INFORMATION
  Report Type: Report from Study
  Country: US (occurrence: US)
  Receive Date: 20240614
  Receipt Date: 20240614
  Transmission Date: 20240715
  Serious: Yes (Other)
  Sender: FDA-Public Use
  Company Number: US-MYLANLABS-2024M1053543

PATIENT
  Age: 69 Year
  Sex: Female

DRUGS (5)
  1. TRIAMCINOLONE [Suspect]
     Active Substance: TRIAMCINOLONE
     Indication: Arthralgia
     Dosage: UNK (INTRA-ARTICULAR INJECTION OF?6CC SOLUTION COMPRISED OF 1CC OF TRIAMCINOLONE 40MG/CC AND 5CC OF
     Route: 014
  2. TRIAMCINOLONE [Suspect]
     Active Substance: TRIAMCINOLONE
     Indication: Osteoarthritis
  3. ROPIVACAINE HYDROCHLORIDE [Suspect]
     Active Substance: ROPIVACAINE HYDROCHLORIDE
     Indication: Arthralgia
     Dosage: UNK (INTRA-ARTICULAR INJECTION OF?6CC SOLUTION COMPRISED OF 1CC OF TRIAMCINOLONE 40MG/CC AND 5CC OF
     Route: 014
  4. ROPIVACAINE HYDROCHLORIDE [Suspect]
     Active Substance: ROPIVACAINE HYDROCHLORIDE
     Indication: Osteoarthritis
  5. IOPAMIDOL [Concomitant]
     Active Substance: IOPAMIDOL
     Indication: Scan with contrast
     Dosage: UNK (DOSE: 3CC)
     Route: 014

REACTIONS (1)
  - Rapidly progressive osteoarthritis [Unknown]
